FAERS Safety Report 7977973-3 (Version None)
Quarter: 2011Q4

REPORT INFORMATION
  Report Type: 
  Country: None (occurrence: None)
  Receive Date: 20111214
  Receipt Date: 20111206
  Transmission Date: 20120403
  Serious: No
  Sender: FDA-Public Use
  Company Number: US-BIOGENIDEC-2011BI046410

PATIENT
  Sex: Male

DRUGS (2)
  1. TYSABRI [Suspect]
     Indication: MULTIPLE SCLEROSIS
     Route: 042
     Dates: start: 20111118
  2. TYSABRI [Suspect]
     Route: 042
     Dates: start: 20100713, end: 20100907

REACTIONS (2)
  - NASAL CONGESTION [None]
  - PAIN [None]
